FAERS Safety Report 20042639 (Version 2)
Quarter: 2022Q1

REPORT INFORMATION
  Report Type: Report from Study
  Country: CA (occurrence: CA)
  Receive Date: 20211108
  Receipt Date: 20220117
  Transmission Date: 20220423
  Serious: Yes (Hospitalization)
  Sender: FDA-Public Use
  Company Number: CA-NOVARTISPH-NVSC2021CA249881

PATIENT
  Sex: Female

DRUGS (2)
  1. KISQALI [Suspect]
     Active Substance: RIBOCICLIB
     Indication: Breast cancer metastatic
     Dosage: UNK
     Route: 048
     Dates: start: 20211013, end: 20220112
  2. KISQALI [Suspect]
     Active Substance: RIBOCICLIB
     Dosage: UNK
     Route: 048
     Dates: start: 20211029

REACTIONS (5)
  - Fluid retention [Unknown]
  - Gait disturbance [Unknown]
  - Neoplasm malignant [Unknown]
  - Rash [Unknown]
  - Incorrect dose administered [Unknown]
